FAERS Safety Report 5014191-5 (Version None)
Quarter: 2006Q2

REPORT INFORMATION
  Report Type: 
  Country: None (occurrence: None)
  Receive Date: 20060414
  Receipt Date: 20051218
  Transmission Date: 20061013
  Serious: No
  Sender: FDA-Public Use
  Company Number: 2005SP004457

PATIENT
  Age: 60 Year
  Sex: Female
  Weight: 68.9467 kg

DRUGS (3)
  1. LUNESTA [Suspect]
     Indication: MIDDLE INSOMNIA
     Dosage: 1 MG;HS;ORAL   : 2 MG;HS;ORAL
     Route: 048
     Dates: start: 20051201, end: 20051201
  2. LUNESTA [Suspect]
     Indication: MIDDLE INSOMNIA
     Dosage: 1 MG;HS;ORAL   : 2 MG;HS;ORAL
     Route: 048
     Dates: start: 20051201, end: 20051201
  3. VERAPAMIL [Concomitant]

REACTIONS (2)
  - DRUG INEFFECTIVE [None]
  - INSOMNIA [None]
